FAERS Safety Report 7491712-4 (Version None)
Quarter: 2011Q2

REPORT INFORMATION
  Report Type: 
  Country: None (occurrence: None)
  Receive Date: 20110518
  Receipt Date: 20110518
  Transmission Date: 20111010
  Serious: Yes (Other)
  Sender: FDA-Public Use
  Company Number: None

PATIENT
  Sex: Female
  Weight: 74.5 kg

DRUGS (9)
  1. REVLIMID [Suspect]
     Indication: MYELODYSPLASTIC SYNDROME
     Dosage: REVLIMID 5MG DAILY PO
     Route: 048
     Dates: start: 20091001, end: 20100801
  2. ALENDRONATE SODIUM [Concomitant]
  3. GABAPENTIN [Concomitant]
  4. OMEPRAZOLE [Concomitant]
  5. PROCHLORPERAZINE TAB [Concomitant]
  6. SIMVASTATIN [Concomitant]
  7. ALBUTEROL SULFATE AUTOHALER [Concomitant]
  8. LEVOTHROID [Concomitant]
  9. NORTRIPTYLINE HCL [Concomitant]

REACTIONS (2)
  - NEUROPATHY PERIPHERAL [None]
  - CONDITION AGGRAVATED [None]
